FAERS Safety Report 10685766 (Version 1)
Quarter: 2014Q4

REPORT INFORMATION
  Report Type: Spontaneous
  Country: US (occurrence: US)
  Receive Date: 20141231
  Receipt Date: 20141231
  Transmission Date: 20150529
  Serious: No
  Sender: FDA-Public Use
  Company Number: US-MALLINCKRODT-T201404505

PATIENT
  Age: 63 Year

DRUGS (2)
  1. METHYLPHENIDATE HYDROCHLORIDE EXTENDED RELEASE TABLETS [Suspect]
     Active Substance: METHYLPHENIDATE HYDROCHLORIDE
     Indication: ATTENTION DEFICIT/HYPERACTIVITY DISORDER
     Dosage: 54 MG, TWO DAILY
     Route: 065
     Dates: start: 2014
  2. LEXAPRO [Concomitant]
     Active Substance: ESCITALOPRAM OXALATE
     Dosage: 20 MG

REACTIONS (6)
  - Irritability [Unknown]
  - Anger [Unknown]
  - Drug effect decreased [Unknown]
  - Drug dose omission [Unknown]
  - Fatigue [Unknown]
  - Drug effect variable [Unknown]

NARRATIVE: CASE EVENT DATE: 2014
